FAERS Safety Report 13649022 (Version 1)
Quarter: 2017Q2

REPORT INFORMATION
  Report Type: Spontaneous
  Country: US (occurrence: US)
  Receive Date: 20170613
  Receipt Date: 20170613
  Transmission Date: 20170830
  Serious: Yes (Death, Other)
  Sender: FDA-Public Use
  Company Number: US-TARO-2017TAR00453

PATIENT
  Sex: Female

DRUGS (2)
  1. UNSPECIFIED MEDICATIONS [Suspect]
     Active Substance: UNSPECIFIED INGREDIENT
  2. AMIODARONE HCL TABLET 200 MG [Suspect]
     Active Substance: AMIODARONE HYDROCHLORIDE
     Indication: ATRIAL FIBRILLATION
     Dosage: UNK
     Route: 048
     Dates: start: 201503

REACTIONS (12)
  - Asthenia [Unknown]
  - Eye haemorrhage [Unknown]
  - Ocular hyperaemia [Unknown]
  - Respiratory arrest [Unknown]
  - Eye pruritus [Unknown]
  - Fatigue [Unknown]
  - Off label use [Unknown]
  - Pulmonary fibrosis [Fatal]
  - Depression [Unknown]
  - Restlessness [Unknown]
  - Disturbance in attention [Unknown]
  - Visual impairment [Unknown]

NARRATIVE: CASE EVENT DATE: 201503
